FAERS Safety Report 5246738-8 (Version None)
Quarter: 2007Q1

REPORT INFORMATION
  Report Type: 
  Country: None (occurrence: None)
  Receive Date: 20070226
  Receipt Date: 20070213
  Transmission Date: 20070707
  Serious: Yes (Other)
  Sender: FDA-Public Use
  Company Number: FR-BRISTOL-MYERS SQUIBB COMPANY-13667274

PATIENT
  Age: 44 Year
  Sex: Male
  Weight: 85 kg

DRUGS (2)
  1. SUSTIVA [Suspect]
     Indication: HIV INFECTION
     Route: 048
     Dates: start: 20070126
  2. COMBIVIR [Concomitant]

REACTIONS (5)
  - DISTURBANCE IN ATTENTION [None]
  - HYPERHIDROSIS [None]
  - SLEEP WALKING [None]
  - SOMNOLENCE [None]
  - VERTIGO [None]
